FAERS Safety Report 12767782 (Version 2)
Quarter: 2016Q4

REPORT INFORMATION
  Report Type: Spontaneous
  Country: US (occurrence: US)
  Receive Date: 20160921
  Receipt Date: 20161014
  Transmission Date: 20170207
  Serious: Yes (Hospitalization)
  Sender: FDA-Public Use
  Company Number: US-BAYER-2016-177368

PATIENT
  Age: 66 Year
  Sex: Female
  Weight: 93.16 kg

DRUGS (3)
  1. BACTRIM DS [Suspect]
     Active Substance: SULFAMETHOXAZOLE\TRIMETHOPRIM
     Indication: URINARY TRACT INFECTION
     Dosage: 160 MG, BID
     Dates: start: 20120112, end: 20120114
  2. CIPROFLOXACIN. [Suspect]
     Active Substance: CIPROFLOXACIN
     Indication: URINARY TRACT INFECTION
     Dosage: 250 MG, BID
     Route: 048
     Dates: start: 20111212, end: 20111222
  3. BACTRIM DS [Suspect]
     Active Substance: SULFAMETHOXAZOLE\TRIMETHOPRIM
     Indication: URINARY TRACT INFECTION
     Dosage: 160 MG, BID
     Route: 048
     Dates: start: 20110926, end: 20111007

REACTIONS (16)
  - Blood creatinine increased [None]
  - Ulcer haemorrhage [None]
  - Hiatus hernia [None]
  - Gastritis erosive [None]
  - Peptic ulcer [None]
  - Blood creatinine increased [None]
  - Gastric ulcer [None]
  - Clostridium difficile infection [None]
  - Gastritis [None]
  - Blood urea increased [None]
  - Blood urea increased [None]
  - Blood creatinine increased [None]
  - Blood urea increased [None]
  - White blood cell count increased [None]
  - Acute kidney injury [None]
  - Haematocrit decreased [None]

NARRATIVE: CASE EVENT DATE: 20120103
